FAERS Safety Report 5322839-0 (Version None)
Quarter: 2007Q2

REPORT INFORMATION
  Report Type: 
  Country: None (occurrence: None)
  Receive Date: 20070511
  Receipt Date: 20070426
  Transmission Date: 20071010
  Serious: Yes (Hospitalization)
  Sender: FDA-Public Use
  Company Number: US-SHR-US-2007-014922

PATIENT
  Age: 53 Year
  Sex: Female

DRUGS (5)
  1. BETASERON [Suspect]
     Indication: MULTIPLE SCLEROSIS
     Dosage: 2 MIU, EVERY 2D
     Route: 058
     Dates: start: 20070423
  2. CLONAZEPAM [Suspect]
     Dates: end: 20070401
  3. ANXIOLYTICS [Concomitant]
     Indication: ANXIETY
     Dosage: UNK TAB(S), UNK
     Route: 048
  4. THYROID PREPARATIONS [Concomitant]
     Indication: THYROID DISORDER
  5. CARDIOVASCULAR SYSTEM DRUGS [Concomitant]

REACTIONS (8)
  - ABNORMAL BEHAVIOUR [None]
  - AGGRESSION [None]
  - CLAUSTROPHOBIA [None]
  - CONVULSION [None]
  - DISORIENTATION [None]
  - DIZZINESS [None]
  - DYSARTHRIA [None]
  - HYPERSOMNIA [None]
